FAERS Safety Report 11816135 (Version 2)
Quarter: 2015Q4

REPORT INFORMATION
  Report Type: Spontaneous
  Country: JP (occurrence: JP)
  Receive Date: 20151209
  Receipt Date: 20151230
  Transmission Date: 20160305
  Serious: Yes (Death)
  Sender: FDA-Public Use
  Company Number: JP-009507513-1512JPN002561

PATIENT
  Age: 84 Year
  Sex: Female
  Weight: 42 kg

DRUGS (22)
  1. PRECEDEX [Concomitant]
     Active Substance: DEXMEDETOMIDINE HYDROCHLORIDE
     Indication: SEDATION
     Dosage: 200 MICROGRAM, QD
     Route: 051
     Dates: start: 20150517, end: 20150608
  2. HUMULIN NOS [Concomitant]
     Active Substance: INSULIN HUMAN
     Indication: HYPERGLYCAEMIA
     Dosage: 10 UNDER 1000 UNIT, PRN
     Route: 051
     Dates: start: 20150517, end: 20150609
  3. BAKTAR [Concomitant]
     Active Substance: SULFAMETHOXAZOLE\TRIMETHOPRIM
     Indication: PROPHYLAXIS
     Dosage: 1.0 G, QD, (ROUTE ST TUBE)
     Route: 050
     Dates: start: 20150527, end: 20150608
  4. ZOSYN [Concomitant]
     Active Substance: PIPERACILLIN SODIUM\TAZOBACTAM SODIUM
     Indication: FEBRILE NEUTROPENIA
     Dosage: 4.5 G, TID
     Route: 051
     Dates: start: 20150520, end: 20150609
  5. NOREPINEPHRINE [Concomitant]
     Active Substance: NOREPINEPHRINE\NOREPINEPHRINE BITARTRATE
     Indication: BLOOD PRESSURE DECREASED
     Dosage: DAILY DOSE UNKNOWN, QD, 0.1
     Route: 051
     Dates: start: 20150525, end: 20150527
  6. GASMOTIN [Concomitant]
     Active Substance: MOSAPRIDE CITRATE
     Indication: GASTRITIS
     Dosage: 5.0 MG, TID
     Route: 050
     Dates: start: 20150520, end: 20150608
  7. SERENACE [Concomitant]
     Active Substance: HALOPERIDOL
     Indication: SEDATION
     Dosage: 5.0 MG, PRN
     Route: 051
     Dates: start: 20150525, end: 20150527
  8. URSO [Concomitant]
     Active Substance: URSODIOL
     Indication: JAUNDICE
     Dosage: 200 MG, TID (ROUTE ST TUBE)
     Dates: start: 20150521, end: 20150608
  9. FUROSEMIDE. [Concomitant]
     Active Substance: FUROSEMIDE
     Indication: CARDIAC FAILURE
     Dosage: 10 MG, PRN
     Route: 051
     Dates: start: 20150517, end: 20150528
  10. SOL MELCORT [Concomitant]
     Active Substance: METHYLPREDNISOLONE
     Indication: INTERSTITIAL LUNG DISEASE
     Dosage: 500 MG, QD
     Route: 051
     Dates: start: 20150527, end: 20150529
  11. FAMOTIDINE. [Concomitant]
     Active Substance: FAMOTIDINE
     Indication: GASTRIC ULCER
     Dosage: 20 MG, BID
     Route: 051
     Dates: start: 20150520, end: 20150601
  12. HANP [Concomitant]
     Active Substance: CARPERITIDE
     Indication: CARDIAC FAILURE
     Dosage: 1 MG, QD
     Route: 051
     Dates: start: 20150517, end: 20150524
  13. ONOACT [Concomitant]
     Active Substance: LANDIOLOL HYDROCHLORIDE
     Indication: ARRHYTHMIA
     Dosage: 120 MG, UNK
     Route: 051
     Dates: start: 20150524, end: 20150524
  14. ITRACONAZOLE. [Concomitant]
     Active Substance: ITRACONAZOLE
     Indication: FEBRILE NEUTROPENIA
     Dosage: 200 MG, QD, DIVIDED DOSE FREQUENCY UNKNOWN
     Route: 048
     Dates: start: 20150508, end: 20150522
  15. CANCIDAS [Suspect]
     Active Substance: CASPOFUNGIN ACETATE
     Indication: FEBRILE NEUTROPENIA
     Dosage: 50 MG, QD
     Route: 041
     Dates: start: 20150524, end: 20150603
  16. TEICOPLANIN [Concomitant]
     Active Substance: TEICOPLANIN
     Indication: FEBRILE NEUTROPENIA
     Dosage: 400 MG, QD
     Route: 051
     Dates: start: 20150522, end: 20150527
  17. HERBESSER [Concomitant]
     Active Substance: DILTIAZEM HYDROCHLORIDE
     Indication: TACHYCARDIA
     Dosage: 50 MG, QD
     Route: 051
     Dates: start: 20150519, end: 20150526
  18. FILGRASTIM [Concomitant]
     Active Substance: FILGRASTIM
     Indication: NEUTROPHIL COUNT DECREASED
     Dosage: 300 MICROGRAM, QD
     Route: 051
     Dates: start: 20150510, end: 20150524
  19. ACELIO [Concomitant]
     Active Substance: ACETAMINOPHEN
     Indication: ANTIPYRESIS
     Dosage: 600 MG, PRN
     Route: 051
     Dates: start: 20150524, end: 20150524
  20. CANCIDAS [Suspect]
     Active Substance: CASPOFUNGIN ACETATE
     Indication: FEBRILE NEUTROPENIA
     Dosage: 70 MG, QD
     Route: 041
     Dates: start: 20150523, end: 20150523
  21. FENTANYL. [Concomitant]
     Active Substance: FENTANYL
     Indication: SEDATION
     Dosage: 1.0 MG, QD
     Route: 051
     Dates: start: 20150518, end: 20150531
  22. MAINTATE [Concomitant]
     Active Substance: BISOPROLOL FUMARATE
     Indication: CARDIAC FAILURE
     Dosage: 1.3 MG, BID, (ROUTE ST TUBE)
     Route: 050
     Dates: start: 20150520, end: 20150608

REACTIONS (7)
  - Interstitial lung disease [Fatal]
  - Arrhythmia [Recovered/Resolved]
  - Blood pressure decreased [Recovered/Resolved]
  - Pyrexia [Recovered/Resolved]
  - Delirium [Recovering/Resolving]
  - Arrhythmia [Recovering/Resolving]
  - Pyrexia [Unknown]

NARRATIVE: CASE EVENT DATE: 20150524
